FAERS Safety Report 6557543-4 (Version None)
Quarter: 2010Q1

REPORT INFORMATION
  Report Type: 
  Country: None (occurrence: None)
  Receive Date: 20100129
  Receipt Date: 20100122
  Transmission Date: 20100710
  Serious: Yes (Other)
  Sender: FDA-Public Use
  Company Number: US-ROCHE-680922

PATIENT
  Sex: Female
  Weight: 67.1 kg

DRUGS (1)
  1. CAPECITABINE [Suspect]
     Dosage: 500 MG AM AND 1000 MG PM. 02 WEEK ON AND 01 WEEK OFF.
     Route: 048
     Dates: start: 20090510, end: 20091220

REACTIONS (2)
  - LUNG DISORDER [None]
  - PNEUMONIA FUNGAL [None]
